FAERS Safety Report 7154020-7 (Version None)
Quarter: 2010Q4

REPORT INFORMATION
  Report Type: 
  Country: None (occurrence: None)
  Receive Date: 20101213
  Receipt Date: 20101129
  Transmission Date: 20110411
  Serious: Yes (Other)
  Sender: FDA-Public Use
  Company Number: PHHY2010JP78249

PATIENT
  Age: 53 Year
  Sex: Female

DRUGS (2)
  1. GLEEVEC [Suspect]
     Indication: GASTROINTESTINAL STROMAL TUMOUR
     Route: 048
  2. CHEMOTHERAPEUTICS NOS [Concomitant]

REACTIONS (5)
  - ABDOMINAL DISTENSION [None]
  - ANAEMIA [None]
  - HAEMORRHAGIC ASCITES [None]
  - INTRA-ABDOMINAL HAEMORRHAGE [None]
  - TUMOUR EXCISION [None]
